FAERS Safety Report 15467893 (Version 3)
Quarter: 2018Q4

REPORT INFORMATION
  Report Type: Report from Study
  Country: CA (occurrence: CA)
  Receive Date: 20181005
  Receipt Date: 20181116
  Transmission Date: 20190204
  Serious: Yes (Other)
  Sender: FDA-Public Use
  Company Number: CA-ROCHE-2194732

PATIENT
  Age: 53 Year
  Sex: Female

DRUGS (3)
  1. PAXIL (CANADA) [Concomitant]
     Dosage: 20 YEARS AGO ;ONGOING: YES
     Route: 048
  2. OCREVUS [Suspect]
     Active Substance: OCRELIZUMAB
     Indication: RELAPSING-REMITTING MULTIPLE SCLEROSIS
     Route: 042
     Dates: start: 20180514
  3. OCREVUS [Suspect]
     Active Substance: OCRELIZUMAB
     Route: 042

REACTIONS (3)
  - Cough [Not Recovered/Not Resolved]
  - Nasopharyngitis [Recovering/Resolving]
  - Lung infection [Recovering/Resolving]

NARRATIVE: CASE EVENT DATE: 20180927
